FAERS Safety Report 12985977 (Version 2)
Quarter: 2017Q1

REPORT INFORMATION
  Report Type: Spontaneous
  Country: JP (occurrence: JP)
  Receive Date: 20161130
  Receipt Date: 20170310
  Transmission Date: 20170428
  Serious: Yes (Other)
  Sender: FDA-Public Use
  Company Number: JP-009507513-1611JPN012385

PATIENT
  Age: 71 Year
  Sex: Female

DRUGS (5)
  1. TAKEPRON [Concomitant]
     Active Substance: LANSOPRAZOLE
     Dosage: UNK
     Route: 065
  2. NESINA [Concomitant]
     Active Substance: ALOGLIPTIN BENZOATE
     Dosage: UNK
     Route: 048
  3. ZETIA [Suspect]
     Active Substance: EZETIMIBE
     Indication: DYSLIPIDAEMIA
     Dosage: 10 MG, QD
     Route: 048
     Dates: start: 20160704, end: 20161115
  4. WARFARIN [Concomitant]
     Active Substance: WARFARIN
     Dosage: UNK
     Route: 048
  5. PROCYLIN [Concomitant]
     Active Substance: BERAPROST SODIUM
     Dosage: UNK
     Route: 048

REACTIONS (1)
  - Interstitial lung disease [Unknown]

NARRATIVE: CASE EVENT DATE: 20161115
